FAERS Safety Report 6445835-9 (Version None)
Quarter: 2009Q4

REPORT INFORMATION
  Report Type: 
  Country: None (occurrence: None)
  Receive Date: 20091119
  Receipt Date: 20091110
  Transmission Date: 20100525
  Serious: Yes (Hospitalization)
  Sender: FDA-Public Use
  Company Number: US-BIOGENIDEC-2009BI036508

PATIENT
  Age: 54 Year
  Sex: Female

DRUGS (1)
  1. AVONEX [Suspect]
     Indication: MULTIPLE SCLEROSIS
     Route: 030
     Dates: start: 20060524

REACTIONS (6)
  - EMOTIONAL DISTRESS [None]
  - KIDNEY INFECTION [None]
  - NEPHROLITHIASIS [None]
  - NEPHROSTOMY TUBE PLACEMENT [None]
  - OBSTRUCTIVE UROPATHY [None]
  - RENAL STONE REMOVAL [None]
